FAERS Safety Report 18718731 (Version 3)
Quarter: 2021Q2

REPORT INFORMATION
  Report Type: Report from Study
  Country: US (occurrence: US)
  Receive Date: 20210108
  Receipt Date: 20210503
  Transmission Date: 20210717
  Serious: Yes (Hospitalization, Other)
  Sender: FDA-Public Use
  Company Number: US-TAKEDA-US202025618

PATIENT
  Sex: Female
  Weight: 66.21 kg

DRUGS (8)
  1. FIRAZYR [Suspect]
     Active Substance: ICATIBANT ACETATE
     Indication: COMPLEMENT DEFICIENCY DISEASE
     Dosage: 30 MILLIGRAM, PRN
     Route: 058
     Dates: start: 20210428
  2. FIRAZYR [Suspect]
     Active Substance: ICATIBANT ACETATE
     Indication: COMPLEMENT DEFICIENCY DISEASE
     Dosage: 30 MILLIGRAM, PRN
     Route: 058
     Dates: start: 20210428
  3. ZYRTEC [Concomitant]
     Active Substance: CETIRIZINE HYDROCHLORIDE
  4. ALBUMIN [Concomitant]
     Active Substance: ALBUMIN HUMAN
  5. LANADELUMAB [Suspect]
     Active Substance: LANADELUMAB
     Indication: HEREDITARY ANGIOEDEMA
     Dosage: 300 MILLIGRAM, Q2WEEKS
     Route: 058
     Dates: start: 202004
  6. LANADELUMAB [Suspect]
     Active Substance: LANADELUMAB
     Indication: IMMUNE SYSTEM DISORDER
     Dosage: 300 MILLIGRAM, Q2WEEKS
     Route: 058
     Dates: start: 20210122
  7. PLAVIX [Concomitant]
     Active Substance: CLOPIDOGREL BISULFATE
  8. XARELTO [Concomitant]
     Active Substance: RIVAROXABAN

REACTIONS (3)
  - Hereditary angioedema [Recovered/Resolved]
  - Headache [Unknown]
  - Thrombosis [Unknown]
